FAERS Safety Report 6734134-3 (Version None)
Quarter: 2010Q2

REPORT INFORMATION
  Report Type: 
  Country: None (occurrence: None)
  Receive Date: 20100520
  Receipt Date: 20100517
  Transmission Date: 20101027
  Serious: Yes (Death)
  Sender: FDA-Public Use
  Company Number: GB-EISAI INC.-E2090-01183-SPO-GB

PATIENT
  Age: 25 Year
  Sex: Male

DRUGS (4)
  1. ZONISAMIDE [Suspect]
     Indication: EPILEPSY
     Route: 048
  2. CLOBAZAM [Concomitant]
  3. EPILIM CHRONO [Concomitant]
  4. RISPERIDONE [Concomitant]

REACTIONS (1)
  - MYOCARDIAL INFARCTION [None]
